FAERS Safety Report 5486292-9 (Version None)
Quarter: 2007Q4

REPORT INFORMATION
  Report Type: 
  Country: None (occurrence: None)
  Receive Date: 20071016
  Receipt Date: 20071009
  Transmission Date: 20080405
  Serious: Yes (Other)
  Sender: FDA-Public Use
  Company Number: PHEH2007US13376

PATIENT
  Age: 54 Year
  Sex: Female
  Weight: 65.759 kg

DRUGS (8)
  1. VIVELLE [Suspect]
     Indication: MENOPAUSE
     Dosage: 0.05 MG, UNK
     Dates: start: 20020601, end: 20020801
  2. FLUOROURACIL [Concomitant]
  3. COMBIPATCH [Suspect]
     Indication: MENOPAUSE
  4. PROVERA [Suspect]
     Indication: MENOPAUSE
     Dosage: 5 MG, UNK
     Dates: start: 19971001, end: 19990601
  5. PREMARIN [Suspect]
     Indication: MENOPAUSE
     Dosage: 0.625 MG, UNK
     Dates: start: 19971001, end: 19990601
  6. PREMPRO [Suspect]
     Indication: MENOPAUSE
     Dosage: .625/2.5 MG
  7. PAXIL [Concomitant]
     Dates: end: 20060101
  8. AMBIEN [Concomitant]

REACTIONS (35)
  - ADNEXA UTERI MASS [None]
  - ASPIRATION BIOPSY [None]
  - BACK PAIN [None]
  - BONE MARROW FAILURE [None]
  - BONE PAIN [None]
  - BREAST ABSCESS [None]
  - BREAST CANCER [None]
  - BREAST CANCER RECURRENT [None]
  - BREAST ENLARGEMENT [None]
  - BREAST INFLAMMATION [None]
  - BREAST MASS [None]
  - BREAST PAIN [None]
  - BREAST TENDERNESS [None]
  - CENTRAL VENOUS CATHETERISATION [None]
  - CHEST WALL MASS [None]
  - DISEASE PROGRESSION [None]
  - DISEASE RECURRENCE [None]
  - HEPATIC CYST [None]
  - INFLAMMATION [None]
  - INFLAMMATORY CARCINOMA OF THE BREAST [None]
  - LUNG NEOPLASM [None]
  - MALIGNANT NEOPLASM PROGRESSION [None]
  - MASTECTOMY [None]
  - METASTASES TO BONE [None]
  - METASTASES TO LYMPH NODES [None]
  - METASTATIC NEOPLASM [None]
  - NIPPLE DISORDER [None]
  - NUCLEAR MAGNETIC RESONANCE IMAGING ABNORMAL [None]
  - OESTROGEN RECEPTOR ASSAY POSITIVE [None]
  - PELVIC MASS [None]
  - SKIN ULCER [None]
  - SPINAL OSTEOARTHRITIS [None]
  - ULCER [None]
  - ULTRASOUND BREAST ABNORMAL [None]
  - UTERINE LEIOMYOMA [None]
